FAERS Safety Report 4710628-7 (Version None)
Quarter: 2005Q3

REPORT INFORMATION
  Report Type: 
  Country: None (occurrence: None)
  Receive Date: 20050707
  Receipt Date: 20050622
  Transmission Date: 20060218
  Serious: Yes (Other)
  Sender: FDA-Public Use
  Company Number: THQ2005A00525

PATIENT
  Sex: Male

DRUGS (2)
  1. ACTOS [Suspect]
     Indication: DIABETES MELLITUS
     Dosage: 30 MG (30 MG, 1 IN 1 D) PER ORAL
     Route: 048
     Dates: start: 20041001
  2. AMITRIPTYLINE HCL [Concomitant]

REACTIONS (5)
  - BLOOD GLUCOSE INCREASED [None]
  - HEPATIC FAILURE [None]
  - HEPATOMEGALY [None]
  - NAUSEA [None]
  - VOMITING [None]
